FAERS Safety Report 7285778-4 (Version None)
Quarter: 2011Q1

REPORT INFORMATION
  Report Type: 
  Country: None (occurrence: None)
  Receive Date: 20110210
  Receipt Date: 20110201
  Transmission Date: 20110831
  Serious: Yes (Other)
  Sender: FDA-Public Use
  Company Number: PHHY2011AU07956

PATIENT
  Age: 50 Year
  Sex: Male

DRUGS (1)
  1. ATENOLOL SANDOZ [Suspect]
     Dosage: 50 MG
     Route: 048

REACTIONS (2)
  - PHARYNGEAL OEDEMA [None]
  - NAUSEA [None]
